FAERS Safety Report 7476409-9 (Version None)
Quarter: 2011Q2

REPORT INFORMATION
  Report Type: 
  Country: None (occurrence: None)
  Receive Date: 20110512
  Receipt Date: 20110422
  Transmission Date: 20111010
  Serious: No
  Sender: FDA-Public Use
  Company Number: US-B.I. PHARMACEUTICALS,INC./RIDGEFIELD-2011-BP-09120BP

PATIENT
  Sex: Female

DRUGS (3)
  1. SIMVASTATIN [Concomitant]
     Indication: BLOOD CHOLESTEROL INCREASED
  2. PRADAXA [Suspect]
     Indication: ATRIAL FIBRILLATION
     Dosage: 300 MG
     Route: 048
     Dates: start: 20110201
  3. DILTIAZEM [Concomitant]
     Indication: HYPERTENSION

REACTIONS (5)
  - CHAPPED LIPS [None]
  - LIP DRY [None]
  - GLOSSITIS [None]
  - CHEILITIS [None]
  - FEELING COLD [None]
